FAERS Safety Report 16496154 (Version 1)
Quarter: 2019Q2

REPORT INFORMATION
  Report Type: Spontaneous
  Country: IT (occurrence: IT)
  Receive Date: 20190628
  Receipt Date: 20190628
  Transmission Date: 20190711
  Serious: Yes (Death)
  Sender: FDA-Public Use
  Company Number: IT-INCYTE CORPORATION-2019IN006144

PATIENT

DRUGS (1)
  1. JAKAVI [Suspect]
     Active Substance: RUXOLITINIB
     Indication: PRIMARY MYELOFIBROSIS
     Dosage: 20 MG, QD
     Route: 048
     Dates: start: 20150828, end: 20190517

REACTIONS (4)
  - Pneumonitis [Fatal]
  - Chronic kidney disease [Fatal]
  - Respiratory failure [Fatal]
  - Lymphadenopathy [Fatal]

NARRATIVE: CASE EVENT DATE: 20190517
